FAERS Safety Report 19837221 (Version 2)
Quarter: 2021Q3

REPORT INFORMATION
  Report Type: Spontaneous
  Country: US (occurrence: US)
  Receive Date: 20210915
  Receipt Date: 20210921
  Transmission Date: 20211014
  Serious: Yes (Other)
  Sender: FDA-Public Use
  Company Number: US-BRISTOL-MYERS SQUIBB COMPANY-BMS-2021-090994

PATIENT
  Age: 45 Year
  Sex: Male
  Weight: 81.8 kg

DRUGS (1)
  1. KENALOG [Suspect]
     Active Substance: TRIAMCINOLONE ACETONIDE
     Indication: MELKERSSON-ROSENTHAL SYNDROME
     Dosage: 0.2 MILLILITER
     Route: 058

REACTIONS (1)
  - Atrophy [Recovered/Resolved]
